FAERS Safety Report 11067261 (Version 1)
Quarter: 2015Q2

REPORT INFORMATION
  Report Type: Spontaneous
  Country: US (occurrence: US)
  Receive Date: 20150426
  Receipt Date: 20150426
  Transmission Date: 20150821
  Serious: Yes (Hospitalization)
  Sender: FDA-Public Use
  Company Number: US-B.I. PHARMACEUTICALS,INC./RIDGEFIELD-2015-BI-21462BP

PATIENT
  Age: 57 Year
  Sex: Female
  Weight: 100 kg

DRUGS (14)
  1. ALBUTEROL. [Concomitant]
     Active Substance: ALBUTEROL
     Indication: ASTHMA
     Dosage: STRENGTH: 8.5/90 MCG; DAILY DOSE: 34/360 MCG
     Route: 055
  2. XANAX [Concomitant]
     Active Substance: ALPRAZOLAM
     Indication: NEUROPATHY PERIPHERAL
     Dosage: 1 MG
     Route: 048
  3. REGLAN [Concomitant]
     Active Substance: METOCLOPRAMIDE HYDROCHLORIDE
     Indication: ABDOMINAL DISCOMFORT
     Dosage: 20 MG
     Route: 048
  4. FUROSEMIDE. [Concomitant]
     Active Substance: FUROSEMIDE
     Indication: FLUID RETENTION
     Dosage: 20 MG
     Route: 048
  5. AMLODIPINE [Concomitant]
     Active Substance: AMLODIPINE BESYLATE
     Indication: HYPERTENSION
     Dosage: 5 MG
     Route: 048
  6. SPIRIVA [Suspect]
     Active Substance: TIOTROPIUM BROMIDE MONOHYDRATE
     Indication: ASTHMA
     Dosage: 18 MCG
     Route: 055
  7. TEMAZEPAM. [Concomitant]
     Active Substance: TEMAZEPAM
     Indication: INITIAL INSOMNIA
     Dosage: 45 MG
     Route: 048
  8. ZOCOR [Concomitant]
     Active Substance: SIMVASTATIN
     Indication: BLOOD CHOLESTEROL INCREASED
     Dosage: (TABLET) STRENGTH: 20 MG; DAILY DOSE: 20 MG
     Route: 048
  9. TRAZODONE [Concomitant]
     Active Substance: TRAZODONE HYDROCHLORIDE
     Indication: DEPRESSION
  10. IBANDRONATE SODIUM. [Concomitant]
     Active Substance: IBANDRONATE SODIUM
     Indication: BONE DISORDER
     Route: 048
  11. OXYCODONE [Concomitant]
     Active Substance: OXYCODONE
     Indication: ARTHRALGIA
     Dosage: 30 MG
     Route: 048
  12. PREDNISONE. [Concomitant]
     Active Substance: PREDNISONE
     Indication: ASTHMA
     Dosage: 20 MG
     Route: 048
  13. TRAZODONE [Concomitant]
     Active Substance: TRAZODONE HYDROCHLORIDE
     Indication: INSOMNIA
     Dosage: 200 MG
     Route: 048
  14. SYMBICORT [Concomitant]
     Active Substance: BUDESONIDE\FORMOTEROL FUMARATE DIHYDRATE
     Indication: ASTHMA
     Dosage: STRENGTH: 160/4.5; DAILY DOSE: 640/18
     Route: 055

REACTIONS (5)
  - Weight increased [Not Recovered/Not Resolved]
  - Off label use [Unknown]
  - Alopecia [Not Recovered/Not Resolved]
  - Chronic obstructive pulmonary disease [Not Recovered/Not Resolved]
  - Incorrect dosage administered [Not Recovered/Not Resolved]

NARRATIVE: CASE EVENT DATE: 201410
